FAERS Safety Report 20359051 (Version 1)
Quarter: 2022Q1

REPORT INFORMATION
  Report Type: Spontaneous
  Country: TW (occurrence: TW)
  Receive Date: 20220120
  Receipt Date: 20220120
  Transmission Date: 20220423
  Serious: Yes (Hospitalization, Other)
  Sender: FDA-Public Use
  Company Number: TW-BIOGEN-2020BI00963651

PATIENT
  Age: 20 Year
  Sex: Female
  Weight: 55 kg

DRUGS (4)
  1. TECFIDERA [Suspect]
     Active Substance: DIMETHYL FUMARATE
     Indication: Multiple sclerosis
     Dosage: FOR 7 DAYS (1ST WEEK)
     Route: 048
     Dates: start: 20200715, end: 20200721
  2. TECFIDERA [Suspect]
     Active Substance: DIMETHYL FUMARATE
     Dosage: FOR 7 DAYS (2ND WEEK)
     Route: 048
     Dates: start: 20200722, end: 20200728
  3. TECFIDERA [Suspect]
     Active Substance: DIMETHYL FUMARATE
     Dosage: 120 MG IN THE MORNING, 240 MG IN THE EVENING (FOR 7 DAYS. 3RD WEEK)
     Route: 048
     Dates: start: 20200729, end: 20200804
  4. TECFIDERA [Suspect]
     Active Substance: DIMETHYL FUMARATE
     Indication: Multiple sclerosis
     Dosage: 4TH WEEK
     Route: 048
     Dates: start: 20200805

REACTIONS (5)
  - Lymphocyte count decreased [Unknown]
  - Multiple sclerosis relapse [Recovered/Resolved]
  - Underdose [Recovered/Resolved]
  - Food allergy [Unknown]
  - Multiple sclerosis [Unknown]

NARRATIVE: CASE EVENT DATE: 20200715
